FAERS Safety Report 7281323-8 (Version None)
Quarter: 2011Q1

REPORT INFORMATION
  Report Type: 
  Country: None (occurrence: None)
  Receive Date: 20110203
  Receipt Date: 20110203
  Transmission Date: 20110831
  Serious: No
  Sender: FDA-Public Use
  Company Number: None

PATIENT
  Sex: Female

DRUGS (1)
  1. MIRAPEX [Suspect]
     Indication: RESTLESS LEGS SYNDROME
     Dosage: (TOTAL DAILY DOSE) 0.5 ORAL
     Route: 048
     Dates: start: 20070601, end: 20101001

REACTIONS (6)
  - INSOMNIA [None]
  - CONDITION AGGRAVATED [None]
  - RESTLESS LEGS SYNDROME [None]
  - DRUG DEPENDENCE [None]
  - DRUG EFFECT DECREASED [None]
  - QUALITY OF LIFE DECREASED [None]
